FAERS Safety Report 22016546 (Version 1)
Quarter: 2023Q1

REPORT INFORMATION
  Report Type: Spontaneous
  Country: US (occurrence: US)
  Receive Date: 20230221
  Receipt Date: 20230221
  Transmission Date: 20230417
  Serious: No
  Sender: FDA-Public Use
  Company Number: US-BAYER-2023A016138

PATIENT
  Age: 69 Year
  Sex: Female

DRUGS (2)
  1. MIRALAX [Suspect]
     Active Substance: POLYETHYLENE GLYCOL 3350
     Dosage: 3 DF
     Route: 048
  2. Phillips Milk of Magnesia - Mint [Concomitant]
     Dosage: 1 DF
     Route: 048

REACTIONS (1)
  - Drug ineffective [Unknown]
